FAERS Safety Report 7051735-6 (Version None)
Quarter: 2010Q4

REPORT INFORMATION
  Report Type: 
  Country: None (occurrence: None)
  Receive Date: 20101019
  Receipt Date: 20100930
  Transmission Date: 20110411
  Serious: Yes (Hospitalization)
  Sender: FDA-Public Use
  Company Number: PHHY2010US65364

PATIENT
  Sex: Female

DRUGS (5)
  1. DIOVAN [Suspect]
     Dosage: 320 MG
  2. TEKTURNA [Suspect]
  3. SIMVASTATIN [Concomitant]
  4. LORAZEPAM [Concomitant]
  5. VITAMIN B-12 [Concomitant]

REACTIONS (6)
  - ABDOMINAL DISTENSION [None]
  - ABDOMINAL PAIN UPPER [None]
  - DIZZINESS [None]
  - FREQUENT BOWEL MOVEMENTS [None]
  - GAIT DISTURBANCE [None]
  - POLLAKIURIA [None]
